FAERS Safety Report 11222155 (Version 6)
Quarter: 2016Q2

REPORT INFORMATION
  Report Type: Report from Study
  Country: EC (occurrence: EC)
  Receive Date: 20150626
  Receipt Date: 20160614
  Transmission Date: 20160815
  Serious: Yes (Other)
  Sender: FDA-Public Use
  Company Number: PHHY2015EC076776

PATIENT
  Age: 51 Year
  Sex: Female

DRUGS (3)
  1. CABERGOLINE. [Concomitant]
     Active Substance: CABERGOLINE
     Indication: PRODUCT USED FOR UNKNOWN INDICATION
     Dosage: 1 DF, QW (FRIDAY NIGHT)
     Route: 065
     Dates: start: 201409
  2. SANDOSTATIN LAR DEPOT [Suspect]
     Active Substance: OCTREOTIDE ACETATE
     Indication: ACROMEGALY
     Dosage: 20 MG, QMO, ONCE A MONTH
     Route: 030
     Dates: start: 20140905, end: 20150619
  3. SANDOSTATIN LAR DEPOT [Suspect]
     Active Substance: OCTREOTIDE ACETATE
     Dosage: 40 MG, QMO, ONCE A MONTH
     Route: 030
     Dates: start: 20150619

REACTIONS (8)
  - Ocular discomfort [Not Recovered/Not Resolved]
  - Pain [Unknown]
  - Visual impairment [Recovering/Resolving]
  - Headache [Not Recovered/Not Resolved]
  - Anxiety [Unknown]
  - Facial pain [Unknown]
  - Cerebrospinal fluid leakage [Not Recovered/Not Resolved]
  - Influenza [Not Recovered/Not Resolved]

NARRATIVE: CASE EVENT DATE: 20150415
